FAERS Safety Report 18576443 (Version 1)
Quarter: 2020Q4

REPORT INFORMATION
  Report Type: Spontaneous
  Country: FR (occurrence: FR)
  Receive Date: 20201203
  Receipt Date: 20201203
  Transmission Date: 20210114
  Serious: Yes (Hospitalization)
  Sender: FDA-Public Use
  Company Number: FR-MYLANLABS-2020M1098578

PATIENT
  Age: 62 Year
  Sex: Female

DRUGS (4)
  1. HEPARINE                           /00027701/ [Suspect]
     Active Substance: HEPARIN SODIUM
     Indication: ANGIOCARDIOGRAM
     Dosage: 1 DOSAGE FORM
     Route: 042
     Dates: start: 20191212, end: 20191212
  2. ISOPTINE [Suspect]
     Active Substance: VERAPAMIL HYDROCHLORIDE
     Indication: ANGIOCARDIOGRAM
     Dosage: 3 MILLIGRAM
     Route: 042
     Dates: start: 20191212, end: 20191212
  3. ATROPINE. [Suspect]
     Active Substance: ATROPINE
     Indication: ANGIOCARDIOGRAM
     Dosage: 1 MILLIGRAM
     Route: 042
     Dates: start: 20191212, end: 20191212
  4. VISIPAQUE [Suspect]
     Active Substance: IODIXANOL
     Indication: ANGIOCARDIOGRAM
     Dosage: 1 DOSAGE FORM
     Route: 042
     Dates: start: 20191212, end: 20191212

REACTIONS (4)
  - Pruritus [Recovered/Resolved]
  - Dyspnoea [Recovered/Resolved]
  - Pharyngeal oedema [Recovered/Resolved]
  - Dysphonia [Recovered/Resolved]

NARRATIVE: CASE EVENT DATE: 20191212
